FAERS Safety Report 19693538 (Version 6)
Quarter: 2021Q3

REPORT INFORMATION
  Report Type: Spontaneous
  Country: US (occurrence: US)
  Receive Date: 20210813
  Receipt Date: 20210928
  Transmission Date: 20211014
  Serious: Yes (Hospitalization)
  Sender: FDA-Public Use
  Company Number: US-BIOGEN-2021BI01038184

PATIENT
  Age: 67 Year
  Sex: Male

DRUGS (3)
  1. TYSABRI [Suspect]
     Active Substance: NATALIZUMAB
     Indication: MULTIPLE SCLEROSIS
     Route: 065
     Dates: start: 20100423, end: 20210507
  2. MODERNA COVID?19 VACCINE [Suspect]
     Active Substance: CX-024414
     Indication: COVID-19 PROPHYLAXIS
     Dosage: 1ST MODERNA COVID?19 VACCINATION
     Route: 065
     Dates: start: 20210410, end: 20210410
  3. MODERNA COVID?19 VACCINE [Suspect]
     Active Substance: CX-024414
     Dosage: 2ND MODERNA COVID?19 VACCINATION
     Route: 065
     Dates: start: 202105, end: 202105

REACTIONS (12)
  - Encephalitis post varicella [Unknown]
  - Peripheral nerve injury [Unknown]
  - Musculoskeletal disorder [Not Recovered/Not Resolved]
  - Dysstasia [Not Recovered/Not Resolved]
  - Gait inability [Not Recovered/Not Resolved]
  - Varicella [Unknown]
  - Confusional state [Unknown]
  - Seizure [Not Recovered/Not Resolved]
  - Mental disorder [Not Recovered/Not Resolved]
  - Infection [Unknown]
  - Herpes zoster [Unknown]
  - Loss of control of legs [Unknown]

NARRATIVE: CASE EVENT DATE: 2021
